FAERS Safety Report 17526994 (Version 2)
Quarter: 2020Q1

REPORT INFORMATION
  Report Type: Spontaneous
  Country: JP (occurrence: JP)
  Receive Date: 20200310
  Receipt Date: 20200316
  Transmission Date: 20200409
  Serious: Yes (Hospitalization)
  Sender: FDA-Public Use
  Company Number: JP-DSJP-DSJ-2020-107521AA

PATIENT

DRUGS (1)
  1. LIXIANA TABLETS [Suspect]
     Active Substance: EDOXABAN TOSYLATE
     Indication: ATRIAL FIBRILLATION
     Dosage: 30MG/DAY
     Route: 065

REACTIONS (5)
  - Haemoglobin decreased [Recovering/Resolving]
  - Haemorrhagic pneumonia [Recovering/Resolving]
  - Liver function test increased [Recovering/Resolving]
  - Blood uric acid increased [Recovering/Resolving]
  - Gastrointestinal haemorrhage [Recovering/Resolving]
